FAERS Safety Report 23256537 (Version 1)
Quarter: 2023Q4

REPORT INFORMATION
  Report Type: Spontaneous
  Country: US (occurrence: US)
  Receive Date: 20231204
  Receipt Date: 20231204
  Transmission Date: 20240110
  Serious: No
  Sender: FDA-Public Use
  Company Number: US-ALK-ABELLO A/S-2023AA004083

PATIENT

DRUGS (24)
  1. ACER NEGUNDO POLLEN [Suspect]
     Active Substance: ACER NEGUNDO POLLEN
     Indication: Product used for unknown indication
     Dosage: UNK
     Route: 058
  2. FRAXINUS AMERICANA POLLEN [Suspect]
     Active Substance: FRAXINUS AMERICANA POLLEN
     Indication: Product used for unknown indication
     Dosage: UNK
     Route: 058
  3. BETULA PENDULA POLLEN [Suspect]
     Active Substance: BETULA PENDULA POLLEN
     Indication: Product used for unknown indication
     Dosage: UNK
     Route: 058
  4. AMARANTHUS RETROFLEXUS POLLEN [Suspect]
     Active Substance: AMARANTHUS RETROFLEXUS POLLEN
     Indication: Product used for unknown indication
     Dosage: UNK
     Route: 058
  5. XANTHIUM STRUMARIUM POLLEN [Suspect]
     Active Substance: XANTHIUM STRUMARIUM POLLEN
     Indication: Product used for unknown indication
     Dosage: UNK
     Route: 058
  6. CYNODON DACTYLON POLLEN [Suspect]
     Active Substance: CYNODON DACTYLON POLLEN
     Indication: Product used for unknown indication
     Dosage: UNK
     Route: 058
  7. CANIS LUPUS FAMILIARIS SKIN [Suspect]
     Active Substance: CANIS LUPUS FAMILIARIS SKIN
     Indication: Product used for unknown indication
     Dosage: UNK
     Route: 058
  8. ULMUS CRASSIFOLIA POLLEN [Suspect]
     Active Substance: ULMUS CRASSIFOLIA POLLEN
     Indication: Product used for unknown indication
     Dosage: UNK
     Route: 058
  9. CARYA OVATA POLLEN [Suspect]
     Active Substance: CARYA OVATA POLLEN
     Indication: Product used for unknown indication
     Dosage: UNK
     Route: 058
  10. SORGHUM HALEPENSE POLLEN [Suspect]
     Active Substance: SORGHUM HALEPENSE POLLEN
     Indication: Product used for unknown indication
     Dosage: UNK
     Route: 058
  11. DERMATOPHAGOIDES FARINAE [Suspect]
     Active Substance: DERMATOPHAGOIDES FARINAE
     Indication: Product used for unknown indication
     Dosage: UNK
     Route: 058
  12. DERMATOPHAGOIDES PTERONYSSINUS [Suspect]
     Active Substance: DERMATOPHAGOIDES PTERONYSSINUS
     Indication: Product used for unknown indication
     Dosage: UNK
     Route: 058
  13. URTICA DIOICA POLLEN [Suspect]
     Active Substance: URTICA DIOICA POLLEN
     Indication: Product used for unknown indication
     Dosage: UNK
     Route: 058
  14. QUERCUS ALBA POLLEN [Suspect]
     Active Substance: QUERCUS ALBA POLLEN
     Indication: Product used for unknown indication
     Dosage: UNK
     Route: 058
  15. PLANTAGO LANCEOLATA POLLEN [Suspect]
     Active Substance: PLANTAGO LANCEOLATA POLLEN
     Indication: Product used for unknown indication
     Dosage: UNK
     Route: 058
  16. AMBROSIA ARTEMISIIFOLIA POLLEN [Suspect]
     Active Substance: AMBROSIA ARTEMISIIFOLIA POLLEN
     Indication: Product used for unknown indication
     Dosage: UNK
     Route: 058
  17. SALSOLA KALI POLLEN [Suspect]
     Active Substance: SALSOLA KALI POLLEN
     Indication: Product used for unknown indication
     Dosage: UNK
     Route: 058
  18. ARTEMISIA TRIDENTATA POLLEN [Suspect]
     Active Substance: ARTEMISIA TRIDENTATA POLLEN
     Indication: Product used for unknown indication
     Dosage: UNK
     Route: 058
  19. RUMEX ACETOSELLA POLLEN [Suspect]
     Active Substance: RUMEX ACETOSELLA POLLEN
     Indication: Product used for unknown indication
     Dosage: UNK
     Route: 058
  20. PLATANUS OCCIDENTALIS POLLEN [Suspect]
     Active Substance: PLATANUS OCCIDENTALIS POLLEN
     Indication: Product used for unknown indication
     Dosage: UNK
     Route: 058
  21. PHLEUM PRATENSE POLLEN [Suspect]
     Active Substance: PHLEUM PRATENSE POLLEN
     Indication: Product used for unknown indication
     Dosage: UNK
     Route: 058
  22. MORUS ALBA POLLEN [Suspect]
     Active Substance: MORUS ALBA POLLEN
     Indication: Product used for unknown indication
     Dosage: UNK
     Route: 058
  23. POPULUS ALBA POLLEN [Suspect]
     Active Substance: POPULUS ALBA POLLEN
     Indication: Product used for unknown indication
     Dosage: UNK
     Route: 058
  24. SALIX NIGRA POLLEN [Suspect]
     Active Substance: SALIX NIGRA POLLEN
     Indication: Product used for unknown indication
     Dosage: UNK
     Route: 058

REACTIONS (2)
  - Injection site urticaria [Unknown]
  - Injection site reaction [Unknown]
